FAERS Safety Report 5583636-4 (Version None)
Quarter: 2008Q1

REPORT INFORMATION
  Report Type: 
  Country: None (occurrence: None)
  Receive Date: 20080107
  Receipt Date: 20071228
  Transmission Date: 20080703
  Serious: Yes (Hospitalization, Other)
  Sender: FDA-Public Use
  Company Number: FR-ABBOTT-07P-056-0429992-00

PATIENT
  Sex: Female

DRUGS (3)
  1. DEPAKENE [Suspect]
     Indication: EPILEPSY
     Route: 048
     Dates: start: 20030201
  2. DEPAKENE [Suspect]
     Dosage: CHRONO
     Route: 048
     Dates: end: 20070901
  3. LEVETIRACETAM [Concomitant]
     Indication: EPILEPSY
     Route: 048

REACTIONS (11)
  - AGGRESSION [None]
  - CONVULSION [None]
  - DEMENTIA [None]
  - FAECAL INCONTINENCE [None]
  - GAIT DISTURBANCE [None]
  - HALLUCINATION [None]
  - HOSPITALISATION [None]
  - PARKINSONISM [None]
  - PROSTHESIS IMPLANTATION [None]
  - UNEVALUABLE EVENT [None]
  - URINARY INCONTINENCE [None]
